FAERS Safety Report 7877608-4 (Version None)
Quarter: 2011Q4

REPORT INFORMATION
  Report Type: 
  Country: None (occurrence: None)
  Receive Date: 20111031
  Receipt Date: 20111020
  Transmission Date: 20120403
  Serious: Yes (Other)
  Sender: FDA-Public Use
  Company Number: US-ASTRAZENECA-2011SE63569

PATIENT
  Age: 71 Year
  Sex: Female
  Weight: 68.9 kg

DRUGS (7)
  1. SIMVASTATIN [Concomitant]
     Indication: BLOOD CHOLESTEROL ABNORMAL
  2. TRIAMTERENE AND HYDROCHLOROTHIAZIDE [Concomitant]
     Dosage: 37.5/25
  3. OMEPRAZOLE [Concomitant]
     Indication: GASTROOESOPHAGEAL REFLUX DISEASE
  4. XANAX [Concomitant]
  5. ARIMIDEX [Suspect]
     Indication: BREAST CANCER
     Route: 048
     Dates: start: 20110201, end: 20110801
  6. ZOLOS [Concomitant]
  7. ASPIRIN [Concomitant]

REACTIONS (13)
  - MALAISE [None]
  - HYPOKINESIA [None]
  - MEMORY IMPAIRMENT [None]
  - OEDEMA PERIPHERAL [None]
  - BALANCE DISORDER [None]
  - JOINT SWELLING [None]
  - FALL [None]
  - HALLUCINATION, AUDITORY [None]
  - DYSGEUSIA [None]
  - MENISCUS LESION [None]
  - ABDOMINAL DISTENSION [None]
  - FINE MOTOR DELAY [None]
  - HEARING IMPAIRED [None]
